FAERS Safety Report 15300982 (Version 1)
Quarter: 2018Q3

REPORT INFORMATION
  Report Type: Spontaneous
  Country: US (occurrence: US)
  Receive Date: 20180809
  Receipt Date: 20180809
  Transmission Date: 20181010
  Serious: Yes (Death)
  Sender: FDA-Public Use
  Company Number: None

PATIENT
  Sex: Male

DRUGS (21)
  1. ESBRIET [Suspect]
     Active Substance: PIRFENIDONE
     Indication: IDIOPATHIC PULMONARY FIBROSIS
     Route: 048
     Dates: start: 20180612
  2. CLONAZEPAM. [Concomitant]
     Active Substance: CLONAZEPAM
  3. ULORIC [Concomitant]
     Active Substance: FEBUXOSTAT
  4. DOXYCYC MONO [Concomitant]
     Active Substance: DOXYCYCLINE
  5. ARIPIPRAZOLE. [Concomitant]
     Active Substance: ARIPIPRAZOLE
  6. CLONAZEPAM. [Concomitant]
     Active Substance: CLONAZEPAM
  7. ENTRESTO [Concomitant]
     Active Substance: SACUBITRIL\VALSARTAN
  8. SIMBRINZA [Concomitant]
     Active Substance: BRIMONIDINE TARTRATE\BRINZOLAMIDE
  9. VYZULTA [Concomitant]
     Active Substance: LATANOPROSTENE BUNOD
  10. LEVOFLOXACIN. [Concomitant]
     Active Substance: LEVOFLOXACIN
  11. POTASSIUM CHLORIDE. [Concomitant]
     Active Substance: POTASSIUM CHLORIDE
  12. METOLAZONE. [Concomitant]
     Active Substance: METOLAZONE
  13. CLOPIDOGREL [Concomitant]
     Active Substance: CLOPIDOGREL BISULFATE
  14. ROSUVASTATIN. [Concomitant]
     Active Substance: ROSUVASTATIN
  15. TRAZODONE [Concomitant]
     Active Substance: TRAZODONE HYDROCHLORIDE
  16. TORSEMIDE. [Concomitant]
     Active Substance: TORSEMIDE
  17. BREO ELLIPTA INH [Concomitant]
  18. SERTRALINE [Concomitant]
     Active Substance: SERTRALINE HYDROCHLORIDE
  19. PREDNISONE. [Concomitant]
     Active Substance: PREDNISONE
  20. COLCHICINE. [Concomitant]
     Active Substance: COLCHICINE
  21. CEPHALEXIN. [Concomitant]
     Active Substance: CEPHALEXIN

REACTIONS (1)
  - Death [None]
